FAERS Safety Report 7610528-9 (Version None)
Quarter: 2011Q3

REPORT INFORMATION
  Report Type: 
  Country: None (occurrence: None)
  Receive Date: 20110715
  Receipt Date: 20110713
  Transmission Date: 20111222
  Serious: Yes (Hospitalization, Other)
  Sender: FDA-Public Use
  Company Number: GB-ASTELLAS-2011EU003714

PATIENT
  Age: 11 Year
  Sex: Male

DRUGS (4)
  1. TACROLIMUS [Suspect]
     Dosage: UNK
     Route: 065
  2. PREDNISOLONE [Suspect]
     Dosage: 35 MG, UNKNOWN/D
     Route: 065
  3. PREDNISOLONE [Suspect]
     Dosage: 1 MG, UNKNOWN/D
     Route: 065
  4. PREDNISOLONE [Suspect]
     Dosage: 60 MG/M2, UNKNOWN/D
     Route: 065

REACTIONS (14)
  - C-REACTIVE PROTEIN INCREASED [None]
  - OLIGURIA [None]
  - RASH ERYTHEMATOUS [None]
  - PALLOR [None]
  - PROTEINURIA [None]
  - RENAL IMPAIRMENT [None]
  - UPPER RESPIRATORY TRACT INFECTION [None]
  - PYREXIA [None]
  - HAEMATURIA [None]
  - GLOMERULONEPHRITIS MEMBRANOPROLIFERATIVE [None]
  - VOMITING [None]
  - STREPTOCOCCUS TEST POSITIVE [None]
  - DEHYDRATION [None]
  - POST STREPTOCOCCAL GLOMERULONEPHRITIS [None]
